FAERS Safety Report 15890604 (Version 1)
Quarter: 2019Q1

REPORT INFORMATION
  Report Type: Spontaneous
  Country: US (occurrence: US)
  Receive Date: 20190130
  Receipt Date: 20190130
  Transmission Date: 20190417
  Serious: Yes (Life-Threatening, Hospitalization)
  Sender: FDA-Public Use
  Company Number: None

PATIENT
  Age: 30 Year
  Sex: Male

DRUGS (4)
  1. DESVENLAFAXINE. [Concomitant]
     Active Substance: DESVENLAFAXINE
  2. AMPHETAMINE/DEXTROAMPHETAMINE [Suspect]
     Active Substance: AMPHETAMINE\DEXTROAMPHETAMINE
  3. TRAZODONE [Concomitant]
     Active Substance: TRAZODONE HYDROCHLORIDE
  4. QUETIAPINE. [Suspect]
     Active Substance: QUETIAPINE

REACTIONS (10)
  - Haemodialysis [None]
  - Hypotension [None]
  - Respiratory failure [None]
  - Body temperature increased [None]
  - Transaminases increased [None]
  - Blood creatine phosphokinase increased [None]
  - Sinus tachycardia [None]
  - Blood creatinine increased [None]
  - Platelet count decreased [None]
  - International normalised ratio increased [None]

NARRATIVE: CASE EVENT DATE: 20181019
